FAERS Safety Report 12064650 (Version 1)
Quarter: 2016Q1

REPORT INFORMATION
  Report Type: Spontaneous
  Country: US (occurrence: US)
  Receive Date: 20160210
  Receipt Date: 20160210
  Transmission Date: 20160526
  Serious: No
  Sender: FDA-Public Use
  Company Number: US-ALLERGAN-1515640US

PATIENT
  Age: 52 Year
  Sex: Female

DRUGS (21)
  1. BOTOX [Suspect]
     Active Substance: ONABOTULINUMTOXINA
     Indication: SKIN WRINKLING
     Dosage: 4 UNK, UNK
     Route: 030
     Dates: start: 20150421, end: 20150421
  2. BOTOX [Suspect]
     Active Substance: ONABOTULINUMTOXINA
     Dosage: 2 UNK, UNK
     Route: 030
     Dates: start: 20150601, end: 20150601
  3. BOTOX [Suspect]
     Active Substance: ONABOTULINUMTOXINA
     Dosage: 12 UNK, UNK
     Route: 030
     Dates: start: 20150615, end: 20150615
  4. BOTOX [Suspect]
     Active Substance: ONABOTULINUMTOXINA
     Indication: SKIN WRINKLING
     Dosage: 2 UNK, UNK
     Route: 030
     Dates: start: 20150421, end: 20150421
  5. BOTOX [Suspect]
     Active Substance: ONABOTULINUMTOXINA
     Dosage: 4 UNK, UNK
     Route: 030
     Dates: start: 20150601, end: 20150601
  6. BOTOX [Suspect]
     Active Substance: ONABOTULINUMTOXINA
     Dosage: 2 UNITS, UNK
     Route: 030
     Dates: start: 20150615, end: 20150615
  7. BOTOX [Suspect]
     Active Substance: ONABOTULINUMTOXINA
     Dosage: 4 UNITS, UNK
     Route: 030
     Dates: start: 20150615, end: 20150615
  8. BOTOX [Suspect]
     Active Substance: ONABOTULINUMTOXINA
     Dosage: 8 UNK, UNK
     Route: 030
     Dates: start: 20150615, end: 20150615
  9. BOTOX [Suspect]
     Active Substance: ONABOTULINUMTOXINA
     Indication: SKIN WRINKLING
     Dosage: 20 UNK, UNK
     Route: 030
     Dates: start: 20150421, end: 20150421
  10. BOTOX [Suspect]
     Active Substance: ONABOTULINUMTOXINA
     Indication: SKIN WRINKLING
     Dosage: 3 UNK, UNK
     Route: 030
     Dates: start: 20150421, end: 20150421
  11. BOTOX [Suspect]
     Active Substance: ONABOTULINUMTOXINA
     Dosage: 12 UNK, UNK
     Route: 030
     Dates: start: 20150601, end: 20150601
  12. BOTOX [Suspect]
     Active Substance: ONABOTULINUMTOXINA
     Dosage: 3 UNITS, UNK
     Route: 030
     Dates: start: 20150615, end: 20150615
  13. BOTOX [Suspect]
     Active Substance: ONABOTULINUMTOXINA
     Indication: SKIN WRINKLING
     Dosage: 8 UNK, SINGLE
     Route: 030
     Dates: start: 20150421, end: 20150421
  14. BOTOX [Suspect]
     Active Substance: ONABOTULINUMTOXINA
     Indication: SKIN WRINKLING
     Dosage: 4 UNK, UNK
     Route: 030
     Dates: start: 20150421, end: 20150421
  15. BOTOX [Suspect]
     Active Substance: ONABOTULINUMTOXINA
     Dosage: 8 UNK, UNK
     Route: 030
     Dates: start: 20150601, end: 20150601
  16. BOTOX [Suspect]
     Active Substance: ONABOTULINUMTOXINA
     Dosage: 3 UNK, UNK
     Route: 030
     Dates: start: 20150601, end: 20150601
  17. BOTOX [Suspect]
     Active Substance: ONABOTULINUMTOXINA
     Dosage: 4 UNK, UNK
     Route: 030
     Dates: start: 20150601, end: 20150601
  18. BOTOX [Suspect]
     Active Substance: ONABOTULINUMTOXINA
     Indication: SKIN WRINKLING
     Dosage: 12 UNK, UNK
     Route: 030
     Dates: start: 20150421, end: 20150421
  19. BOTOX [Suspect]
     Active Substance: ONABOTULINUMTOXINA
     Dosage: 20 UNK, UNK
     Route: 030
     Dates: start: 20150601, end: 20150601
  20. BOTOX [Suspect]
     Active Substance: ONABOTULINUMTOXINA
     Dosage: 20 UNK, UNK
     Route: 030
     Dates: start: 20150615, end: 20150615
  21. BOTOX [Suspect]
     Active Substance: ONABOTULINUMTOXINA
     Dosage: 4 UNITS, UNK
     Route: 030
     Dates: start: 20150615, end: 20150615

REACTIONS (1)
  - Drug ineffective [Unknown]
